FAERS Safety Report 5428452-9 (Version None)
Quarter: 2007Q3

REPORT INFORMATION
  Report Type: 
  Country: None (occurrence: None)
  Receive Date: 20070823
  Receipt Date: 20070808
  Transmission Date: 20080115
  Serious: Yes (Other)
  Sender: FDA-Public Use
  Company Number: 2007BI016471

PATIENT
  Age: 43 Year
  Sex: Female

DRUGS (6)
  1. NATALIZUMAB [Suspect]
     Indication: MULTIPLE SCLEROSIS
     Dosage: 300 MG; QM; IV
     Route: 042
     Dates: start: 20070507, end: 20070702
  2. TYLENOL (CAPLET) [Concomitant]
  3. ALEVE [Concomitant]
  4. SYTHROID [Concomitant]
  5. PROZAC [Concomitant]
  6. PRILOSEC [Concomitant]

REACTIONS (4)
  - AUTOIMMUNE DISORDER [None]
  - AUTOIMMUNE HEPATITIS [None]
  - CONDITION AGGRAVATED [None]
  - HEPATITIS ACUTE [None]
